FAERS Safety Report 13468945 (Version 1)
Quarter: 2017Q2

REPORT INFORMATION
  Report Type: Spontaneous
  Country: NL (occurrence: NL)
  Receive Date: 20170421
  Receipt Date: 20170421
  Transmission Date: 20170830
  Serious: Yes (Other)
  Sender: FDA-Public Use
  Company Number: NL-TEVA-762761ROM

PATIENT
  Age: 85 Year
  Sex: Female

DRUGS (2)
  1. FOLIUMZUUR TABLET 5MG [Suspect]
     Active Substance: FOLIC ACID
     Indication: VITAMIN B COMPLEX DEFICIENCY
     Dosage: 5 MILLIGRAM DAILY;
     Route: 048
     Dates: start: 20161026, end: 201702
  2. OMEPRAZOLE CAPSULE MGA 40MG [Concomitant]
     Dosage: 40 MILLIGRAM DAILY;
     Route: 048

REACTIONS (3)
  - Gait disturbance [Recovering/Resolving]
  - Pain in extremity [Recovering/Resolving]
  - Polyneuropathy [Recovering/Resolving]

NARRATIVE: CASE EVENT DATE: 201701
